FAERS Safety Report 6144558-3 (Version None)
Quarter: 2009Q2

REPORT INFORMATION
  Report Type: 
  Country: None (occurrence: None)
  Receive Date: 20090406
  Receipt Date: 20090403
  Transmission Date: 20091009
  Serious: Yes (Hospitalization)
  Sender: FDA-Public Use
  Company Number: PHHY2009FR10700

PATIENT
  Sex: Male

DRUGS (7)
  1. INIPOMP [Suspect]
     Dosage: 20 MG, UNK
     Route: 048
     Dates: start: 20081221
  2. NEORAL [Suspect]
     Dosage: UNK
     Route: 048
     Dates: start: 20081221
  3. CELLCEPT [Suspect]
     Dosage: 2 MG, UNK
     Route: 048
     Dates: start: 20081221
  4. RIMIFON [Suspect]
     Dosage: 150 MG, UNK
     Route: 048
     Dates: start: 20081221
  5. PREDNISOLONE [Suspect]
     Dosage: 10 MG
     Route: 048
     Dates: start: 20081221
  6. BACTRIM [Suspect]
     Dosage: UNK
     Route: 048
  7. AVLOCARDYL [Suspect]
     Indication: HYPERTENSION
     Dosage: 1 DF, UNK
     Route: 065

REACTIONS (3)
  - ARTHRITIS [None]
  - HYPERURICAEMIA [None]
  - JOINT EFFUSION [None]
